FAERS Safety Report 4561857-7 (Version None)
Quarter: 2005Q1

REPORT INFORMATION
  Report Type: 
  Country: None (occurrence: None)
  Receive Date: 20050125
  Receipt Date: 20050119
  Transmission Date: 20050727
  Serious: Yes (Death, Other)
  Sender: FDA-Public Use
  Company Number: USA-2004-0013969

PATIENT
  Age: 74 Year
  Sex: Female

DRUGS (16)
  1. OXYCONTIN [Suspect]
     Indication: CANCER PAIN
     Dosage: 160 MG, Q12H, ORAL
     Route: 048
  2. OXYIR CAPSULES 5 MG (OXYCODONE HYDROHCLORIDE) IR CAPSULE [Suspect]
     Indication: CANCER PAIN
     Dosage: 30 MG, Q4H, ORAL
     Route: 048
  3. OXYFAST CONCENTRATE 20MG/ML (OXYCODONE HYDROCHLORIDE) ORAL SOLUTION [Suspect]
  4. CLARITIN [Concomitant]
  5. CLONAZEPAM [Concomitant]
  6. COMBIVENT (SALBUTAMOL SULFATE, IPRATROPIUM BROMIDE) [Concomitant]
  7. COLACE CAPSULE [Concomitant]
  8. FERROUS SULFATE TAB [Concomitant]
  9. LASIX [Concomitant]
  10. KCL TAB [Concomitant]
  11. NEURONTIN [Concomitant]
  12. ZANTAC [Concomitant]
  13. SYNTHROID [Concomitant]
  14. COUMADIN [Concomitant]
  15. IBUPROFEN [Concomitant]
  16. NITROGLYCERIN ^SLOVAKOFARMA^ (GLYCERYL TRINITRATE) [Concomitant]

REACTIONS (3)
  - DRUG DEPENDENCE [None]
  - DRUG INEFFECTIVE [None]
  - PAIN [None]
